FAERS Safety Report 6811439-9 (Version None)
Quarter: 2010Q2

REPORT INFORMATION
  Report Type: 
  Country: None (occurrence: None)
  Receive Date: 20100630
  Receipt Date: 20100617
  Transmission Date: 20101027
  Serious: Yes (Hospitalization)
  Sender: FDA-Public Use
  Company Number: GB-GENENTECH-291291

PATIENT
  Age: 58 Year
  Sex: Female

DRUGS (16)
  1. MABTHERA [Suspect]
     Indication: MUSCULOSKELETAL PAIN
     Dosage: 1 G, UNK
     Route: 042
     Dates: start: 20090808
  2. ALENDRONATE SODIUM [Concomitant]
     Indication: OSTEOPOROSIS
     Dosage: 70 MG, 1/WEEK
  3. ARTHROTEC [Concomitant]
     Indication: ANTIINFLAMMATORY THERAPY
     Dosage: 1 DF, BID
  4. BENDROFLUAZIDE [Concomitant]
     Indication: HYPERTENSION
     Dosage: 2.5 MG, QD
  5. CALCICHEW D3 [Concomitant]
     Indication: OSTEOPOROSIS PROPHYLAXIS
     Dosage: 1 DF, BID
  6. DIHYDROCODEINE BITARTRATE INJ [Concomitant]
     Indication: PAIN
     Dosage: UNK
  7. DOCUSATE [Concomitant]
     Indication: CONSTIPATION
     Dosage: 200 MG, BID
  8. FENTANYL [Concomitant]
     Indication: PAIN
     Dosage: 37 A?G, UNK
     Route: 062
  9. FLUOXETINE [Concomitant]
     Indication: DEPRESSION
     Dosage: 20 MG, QD
  10. GABAPENTIN [Concomitant]
     Indication: NEURALGIA
     Dosage: 600 MG, TID
  11. LANSOPRAZOLE [Concomitant]
     Indication: DYSPEPSIA
     Dosage: 30 MG, QD
  12. METOCLOPRAMIDE [Concomitant]
     Indication: NAUSEA
     Dosage: 10 MG, TID
  13. METOCLOPRAMIDE [Concomitant]
     Indication: VOMITING
  14. ACETAMINOPHEN [Concomitant]
     Indication: PAIN
     Dosage: 1 G, QID
  15. PREDNISOLONE [Concomitant]
     Indication: MUSCULOSKELETAL PAIN
     Dosage: 10 MG, QD
  16. SENNA [Concomitant]
     Indication: CONSTIPATION
     Dosage: 2 DF, PRN

REACTIONS (4)
  - DEPRESSED LEVEL OF CONSCIOUSNESS [None]
  - NEUROLOGICAL SYMPTOM [None]
  - RENAL FAILURE ACUTE [None]
  - VASCULITIS [None]
